FAERS Safety Report 7853939-9 (Version None)
Quarter: 2011Q4

REPORT INFORMATION
  Report Type: 
  Country: None (occurrence: None)
  Receive Date: 20111026
  Receipt Date: 20111021
  Transmission Date: 20120403
  Serious: Yes (Other)
  Sender: FDA-Public Use
  Company Number: JP-PFIZER INC-2011256015

PATIENT
  Age: 75 Year
  Sex: Female

DRUGS (2)
  1. LYRICA [Suspect]
     Dosage: 25 MG/DAY
     Route: 048
  2. LYRICA [Suspect]
     Dosage: 75 MG/DAY
     Route: 048

REACTIONS (3)
  - BLOOD POTASSIUM INCREASED [None]
  - CREATININE RENAL CLEARANCE INCREASED [None]
  - TREMOR [None]
